FAERS Safety Report 12342587 (Version 1)
Quarter: 2016Q2

REPORT INFORMATION
  Report Type: Spontaneous
  Country: US (occurrence: US)
  Receive Date: 20160506
  Receipt Date: 20160506
  Transmission Date: 20160815
  Serious: Yes (Other)
  Sender: FDA-Public Use
  Company Number: US-GLAXOSMITHKLINE-US2016GSK063409

PATIENT
  Sex: Female

DRUGS (1)
  1. ADVAIR DISKUS [Suspect]
     Active Substance: FLUTICASONE PROPIONATE\SALMETEROL XINAFOATE
     Indication: ASTHMA
     Dosage: UNK
     Dates: start: 2008

REACTIONS (4)
  - Atrial fibrillation [Not Recovered/Not Resolved]
  - Malaise [Not Recovered/Not Resolved]
  - Anxiety [Not Recovered/Not Resolved]
  - Drug dose omission [Not Recovered/Not Resolved]
